FAERS Safety Report 20312447 (Version 1)
Quarter: 2022Q1

REPORT INFORMATION
  Report Type: Spontaneous
  Country: US (occurrence: None)
  Receive Date: 20220108
  Receipt Date: 20220108
  Transmission Date: 20220423
  Serious: Yes (Disabling)
  Sender: FDA-Public Use
  Company Number: None

PATIENT
  Age: 76 Year
  Sex: Female
  Weight: 85.5 kg

DRUGS (12)
  1. CASIRIVIMAB\IMDEVIMAB [Suspect]
     Active Substance: CASIRIVIMAB\IMDEVIMAB
     Indication: COVID-19
     Dosage: OTHER QUANTITY : 4 INJECTION(S);?
     Route: 030
     Dates: start: 20220103, end: 20220103
  2. MODERNA COVID-19 VACCINE [Suspect]
     Active Substance: ELASOMERAN
     Indication: COVID-19 immunisation
  3. ESTRADIOL [Concomitant]
     Active Substance: ESTRADIOL
  4. CALCIUM [Concomitant]
     Active Substance: CALCIUM
  5. MELATONIN [Concomitant]
     Active Substance: MELATONIN
  6. HERBALS\TURMERIC [Concomitant]
     Active Substance: HERBALS\TURMERIC
  7. ZINC [Concomitant]
     Active Substance: ZINC
  8. OREGANO LEAF OIL [Concomitant]
     Active Substance: OREGANO LEAF OIL
  9. VITAMIN C [Concomitant]
     Active Substance: ASCORBIC ACID
  10. VITAMIN D3 [Concomitant]
     Active Substance: CHOLECALCIFEROL
  11. IRON [Concomitant]
     Active Substance: IRON
  12. MAGNESIUM [Concomitant]
     Active Substance: MAGNESIUM

REACTIONS (5)
  - Rash pruritic [None]
  - Rash [None]
  - Rash [None]
  - Rash [None]
  - Vaccination complication [None]

NARRATIVE: CASE EVENT DATE: 20220105
